FAERS Safety Report 9506529 (Version 2)
Quarter: 2013Q3

REPORT INFORMATION
  Report Type: Spontaneous
  Country: AU (occurrence: AU)
  Receive Date: 20130906
  Receipt Date: 20130906
  Transmission Date: 20140515
  Serious: Yes (Hospitalization)
  Sender: FDA-Public Use
  Company Number: PHHY2013AU090392

PATIENT
  Sex: Female

DRUGS (5)
  1. RIVASTIGMINE [Suspect]
     Dosage: 4.6 MG, DAILY
  2. PARACETAMOL [Concomitant]
     Dosage: UNK UKN, UNK
  3. CLOPIDOGREL [Concomitant]
     Dosage: UNK UKN, UNK
  4. BUPRENORPHINE [Concomitant]
     Dosage: UNK UKN, UNK
  5. ESOMEPRAZOLE MAGNESIUM [Concomitant]
     Dosage: UNK UKN, UNK

REACTIONS (5)
  - Cognitive disorder [Not Recovered/Not Resolved]
  - Aggression [Not Recovered/Not Resolved]
  - Victim of abuse [Unknown]
  - Hallucination [Unknown]
  - Hypertension [Not Recovered/Not Resolved]
